FAERS Safety Report 23037841 (Version 2)
Quarter: 2023Q4

REPORT INFORMATION
  Report Type: Spontaneous
  Country: IT (occurrence: None)
  Receive Date: 20231006
  Receipt Date: 20231102
  Transmission Date: 20240110
  Serious: Yes (Hospitalization)
  Sender: FDA-Public Use
  Company Number: IT-ROCHE-3430826

PATIENT
  Age: 52 Year
  Sex: Female

DRUGS (1)
  1. OCREVUS [Suspect]
     Active Substance: OCRELIZUMAB
     Indication: Primary progressive multiple sclerosis
     Route: 065
     Dates: start: 20201127

REACTIONS (2)
  - Febrile neutropenia [Unknown]
  - Sepsis [Unknown]

NARRATIVE: CASE EVENT DATE: 20230810
